FAERS Safety Report 15686072 (Version 2)
Quarter: 2019Q1

REPORT INFORMATION
  Report Type: Spontaneous
  Country: US (occurrence: US)
  Receive Date: 20181204
  Receipt Date: 20190215
  Transmission Date: 20190417
  Serious: Yes (Other)
  Sender: FDA-Public Use
  Company Number: US-SA-2018SA326814

PATIENT
  Age: 59 Year
  Sex: Female
  Weight: 92.97 kg

DRUGS (9)
  1. INTELENCE [Concomitant]
     Active Substance: ETRAVIRINE
  2. TAXOTERE [Suspect]
     Active Substance: DOCETAXEL
     Indication: LIP AND/OR ORAL CAVITY CANCER
     Dosage: UNK UNK, QCY
     Route: 042
     Dates: start: 20121026, end: 20121026
  3. OXYMORPHONE [Concomitant]
     Active Substance: OXYMORPHONE
  4. DURAGESIC [Concomitant]
     Active Substance: FENTANYL
  5. PREVACID [Concomitant]
     Active Substance: LANSOPRAZOLE
  6. TRUVADA [Concomitant]
     Active Substance: EMTRICITABINE\TENOFOVIR DISOPROXIL FUMARATE
  7. CARISOPRODOL. [Concomitant]
     Active Substance: CARISOPRODOL
  8. PLATINOL [Concomitant]
     Active Substance: CISPLATIN
     Dosage: UNK
     Route: 065
  9. ISENTRESS [Concomitant]
     Active Substance: RALTEGRAVIR POTASSIUM

REACTIONS (1)
  - Alopecia [Recovering/Resolving]

NARRATIVE: CASE EVENT DATE: 2013
